FAERS Safety Report 14858284 (Version 1)
Quarter: 2018Q2

REPORT INFORMATION
  Report Type: Spontaneous
  Country: FR (occurrence: FR)
  Receive Date: 20180508
  Receipt Date: 20180508
  Transmission Date: 20180711
  Serious: Yes (Other)
  Sender: FDA-Public Use
  Company Number: FR-MERCK KGAA-2047355

PATIENT
  Age: 58 Year
  Sex: Female

DRUGS (1)
  1. NOVOTHYROX [Suspect]
     Active Substance: LEVOTHYROXINE SODIUM
     Indication: PRODUCT USED FOR UNKNOWN INDICATION
     Dates: start: 201704

REACTIONS (15)
  - Pericarditis [None]
  - Asthenia [None]
  - Insomnia [None]
  - Mental impairment [None]
  - Gait disturbance [None]
  - Alopecia [None]
  - Headache [None]
  - Hypokinesia [None]
  - Depressed mood [None]
  - Muscle spasms [None]
  - Fatigue [None]
  - Memory impairment [None]
  - General physical health deterioration [None]
  - Constipation [None]
  - Abdominal pain [None]

NARRATIVE: CASE EVENT DATE: 201704
